FAERS Safety Report 8759486 (Version 2)
Quarter: 2012Q4

REPORT INFORMATION
  Report Type: 
  Country: US (occurrence: US)
  Receive Date: 20120829
  Receipt Date: 20120829
  Transmission Date: 20130627
  Serious: No
  Sender: FDA-Public Use
  Company Number: US-MERCK-1206USA05098

PATIENT

DRUGS (1)
  1. SINGULAIR [Suspect]
     Indication: ASTHMA
     Dosage: 4 mg, UNK
     Route: 048

REACTIONS (2)
  - Nervous system disorder [Unknown]
  - Mental disorder [Unknown]
